FAERS Safety Report 8435291-3 (Version None)
Quarter: 2012Q2

REPORT INFORMATION
  Report Type: 
  Country: None (occurrence: None)
  Receive Date: 20120614
  Receipt Date: 20120606
  Transmission Date: 20120825
  Serious: Yes (Other)
  Sender: FDA-Public Use
  Company Number: DE-UCBSA-059176

PATIENT
  Age: 62 Year
  Sex: Female
  Weight: 100 kg

DRUGS (5)
  1. KEPPRA [Suspect]
     Dosage: 1000, 3 TABLETS, TOTAL AMOUNT: 3000 MG
     Dates: start: 20120601
  2. ZOLPIDEM [Suspect]
     Dosage: 10, 3 TABLETS, TOTAL AMOUNT: 30 MG
     Dates: start: 20120601
  3. BROMAZEPAM [Suspect]
     Dosage: 6, 3 TABLETS, TOTAL AMOUNT: 18 MG
     Dates: start: 20120601
  4. ALCOHOL [Suspect]
     Dosage: ALCOHOLIC STIMULANTS, UNKNOWN AMOUNT
     Dates: start: 20120601
  5. DICLO [Suspect]
     Dosage: 100, 6 TABLETS OVER 24 HOURS, TOTAL AMOUNT : 600 MG
     Dates: start: 20120601

REACTIONS (2)
  - DRUG ABUSE [None]
  - DYSARTHRIA [None]
